FAERS Safety Report 12507792 (Version 1)
Quarter: 2016Q2

REPORT INFORMATION
  Report Type: Spontaneous
  Country: US (occurrence: None)
  Receive Date: 20160628
  Receipt Date: 20160628
  Transmission Date: 20160815
  Serious: No
  Sender: FDA-Public Use
  Company Number: None

PATIENT
  Age: 63 Year
  Sex: Male

DRUGS (10)
  1. TRINTELLIX [Concomitant]
     Active Substance: VORTIOXETINE HYDROBROMIDE
  2. TAMSULOSIN [Concomitant]
     Active Substance: TAMSULOSIN
  3. PRAZODONE [Concomitant]
  4. VITAMIN B12 LIQUID [Concomitant]
  5. VITAMIN E [Concomitant]
     Active Substance: .ALPHA.-TOCOPHEROL
  6. ADULT MULTI ONE-A-DAY VITAMIN [Concomitant]
  7. VITAMIN D [Concomitant]
     Active Substance: CHOLECALCIFEROL
  8. CLEAR MEN SCALP THERAPY UNILEVER [Suspect]
     Active Substance: PYRITHIONE ZINC
  9. LETHICIN [Concomitant]
  10. FISH OIL [Concomitant]
     Active Substance: FISH OIL

REACTIONS (4)
  - Skin discolouration [None]
  - Dermatitis [None]
  - Skin irritation [None]
  - Chemical injury [None]

NARRATIVE: CASE EVENT DATE: 20160527
